FAERS Safety Report 9617956 (Version 1)
Quarter: 2013Q4

REPORT INFORMATION
  Report Type: Spontaneous
  Country: GB (occurrence: GB)
  Receive Date: 20131011
  Receipt Date: 20131011
  Transmission Date: 20140711
  Serious: Yes (Other)
  Sender: FDA-Public Use
  Company Number: GB-WATSON-2013-18332

PATIENT
  Age: 6 Month
  Sex: Female

DRUGS (1)
  1. FLUOXETINE (UNKNOWN) [Suspect]
     Indication: DEPRESSION
     Dosage: 20 MG, UNKNOWN
     Route: 064
     Dates: start: 20091127

REACTIONS (3)
  - Kawasaki^s disease [Unknown]
  - Erythema [Unknown]
  - Skin exfoliation [Unknown]
